FAERS Safety Report 21407928 (Version 1)
Quarter: 2022Q4

REPORT INFORMATION
  Report Type: Spontaneous
  Country: CZ (occurrence: CZ)
  Receive Date: 20221004
  Receipt Date: 20221004
  Transmission Date: 20230112
  Serious: Yes (Other)
  Sender: FDA-Public Use
  Company Number: None

PATIENT
  Age: 15 Year
  Sex: Male
  Weight: 57 kg

DRUGS (2)
  1. BISOPROLOL [Suspect]
     Active Substance: BISOPROLOL
     Indication: Secondary hypertension
     Dosage: 5 MILLIGRAM DAILY; 1-0-0, UNIT DOSE : 5 MG, DURATION  :5 DAYS
     Dates: start: 20220825, end: 20220829
  2. AMLODIPINE BESYLATE [Suspect]
     Active Substance: AMLODIPINE BESYLATE
     Indication: Secondary hypertension
     Dosage: 0-0-0.5, UNIT DOSE : 5 MG, DURATION : 6 DAYS
     Dates: start: 20220824, end: 20220829

REACTIONS (2)
  - Hepatic enzyme increased [Recovered/Resolved]
  - Chest pain [Recovered/Resolved]

NARRATIVE: CASE EVENT DATE: 20220827
